FAERS Safety Report 19202901 (Version 2)
Quarter: 2021Q2

REPORT INFORMATION
  Report Type: Report from Study
  Country: CH (occurrence: CH)
  Receive Date: 20210430
  Receipt Date: 20210622
  Transmission Date: 20210717
  Serious: Yes (Other)
  Sender: FDA-Public Use
  Company Number: CH-TEVA-2021-CH-1904567

PATIENT
  Age: 79 Year
  Sex: Male

DRUGS (5)
  1. GEMCITABINE. [Suspect]
     Active Substance: GEMCITABINE
     Indication: PANCREATIC CARCINOMA
     Dosage: GEMCITABINE?BASED CHEMORADIATION
     Route: 065
  2. FOLINIC ACID [Suspect]
     Active Substance: LEUCOVORIN
     Indication: PANCREATIC CARCINOMA
     Dosage: RECEIVED 4 CYCLES (TWO WEEKLY SCHEDULE) OF FOLFORINOX CHEMOTHERAPY
     Route: 065
  3. OXALIPLATIN. [Suspect]
     Active Substance: OXALIPLATIN
     Indication: PANCREATIC CARCINOMA
     Dosage: RECEIVED 4 CYCLES (TWO WEEKLY SCHEDULE) OF FOLFORINOX CHEMOTHERAPY
     Route: 065
  4. 5?FLUOROURACIL [Suspect]
     Active Substance: FLUOROURACIL
     Indication: PANCREATIC CARCINOMA
     Dosage: RECEIVED 4 CYCLES (TWO WEEKLY SCHEDULE) OF FOLFORINOX CHEMOTHERAPY
     Route: 065
  5. IRINOTECAN [Suspect]
     Active Substance: IRINOTECAN
     Indication: PANCREATIC CARCINOMA
     Dosage: RECEIVED 4 CYCLES (TWO WEEKLY SCHEDULE) OF FOLFORINOX CHEMOTHERAPY
     Route: 065

REACTIONS (2)
  - Gastric ulcer [Recovered/Resolved]
  - Abdominal pain [Recovered/Resolved]
